FAERS Safety Report 19620316 (Version 1)
Quarter: 2021Q3

REPORT INFORMATION
  Report Type: Spontaneous
  Country: DK (occurrence: DK)
  Receive Date: 20210728
  Receipt Date: 20210728
  Transmission Date: 20211014
  Serious: Yes (Hospitalization)
  Sender: FDA-Public Use
  Company Number: DK-NOVOPROD-830986

PATIENT
  Age: 80 Year
  Sex: Female

DRUGS (8)
  1. COMIRNATY [Suspect]
     Active Substance: TOZINAMERAN
     Dosage: 1 DF
     Route: 030
     Dates: start: 20210403, end: 20210427
  2. OZEMPIC [Suspect]
     Active Substance: SEMAGLUTIDE
     Indication: TYPE 2 DIABETES MELLITUS
     Dosage: 1 MG, QW
     Route: 058
     Dates: start: 20210415, end: 20210520
  3. ACICLOVIR [Suspect]
     Active Substance: ACYCLOVIR
     Indication: HERPES ZOSTER
     Dosage: 4000 MG, QD(STRENGTH: 800 MG.)
     Route: 048
     Dates: start: 20210507, end: 20210514
  4. COMIRNATY [Suspect]
     Active Substance: TOZINAMERAN
     Indication: COVID-19 IMMUNISATION
     Dosage: 1 DF
     Route: 030
     Dates: start: 20210403, end: 20210427
  5. MAREVAN [Concomitant]
     Active Substance: WARFARIN SODIUM
     Indication: ANTICOAGULANT THERAPY
     Dosage: UNK
     Dates: start: 20160614
  6. ALENDRONAT [Concomitant]
     Active Substance: ALENDRONATE SODIUM
     Indication: OSTEOPOROSIS
     Dosage: UNK
     Dates: start: 20200114
  7. ESTRING [Concomitant]
     Active Substance: ESTRADIOL
     Indication: HORMONE LEVEL ABNORMAL
     Dosage: UNK
     Dates: start: 20180710
  8. VAGIFEM [Concomitant]
     Active Substance: ESTRADIOL
     Indication: HORMONE LEVEL ABNORMAL
     Dosage: UNK
     Dates: start: 20160214

REACTIONS (2)
  - Alanine aminotransferase increased [Recovered/Resolved]
  - Vomiting [Recovered/Resolved]

NARRATIVE: CASE EVENT DATE: 20210520
